FAERS Safety Report 8979374 (Version 2)
Quarter: 2013Q1

REPORT INFORMATION
  Report Type: Report from Study
  Country: ES (occurrence: ES)
  Receive Date: 20121221
  Receipt Date: 20130104
  Transmission Date: 20140127
  Serious: Yes (Hospitalization)
  Sender: FDA-Public Use
  Company Number: ES-ROCHE-1170148

PATIENT
  Age: 67 Year
  Sex: Female
  Weight: 69.5 kg

DRUGS (3)
  1. BEVACIZUMAB [Suspect]
     Indication: OVARIAN CANCER
     Dosage: LAST DOSE PRIOR TO SAE ON 12/DEC/2012
     Route: 042
     Dates: start: 20120314, end: 20121214
  2. PACLITAXEL [Suspect]
     Indication: OVARIAN CANCER
     Dosage: DATE OF LAST DOSE PRIOR TO SAE:18/JUL/2012
     Route: 042
     Dates: start: 20120314
  3. CARBOPLATIN [Suspect]
     Indication: OVARIAN CANCER
     Dosage: DATE OF LAST DOSE PRIOR TO SAE:18/JU/2012
     Route: 042
     Dates: start: 20120314

REACTIONS (1)
  - Grand mal convulsion [Recovered/Resolved]
